FAERS Safety Report 23955611 (Version 2)
Quarter: 2024Q2

REPORT INFORMATION
  Report Type: Spontaneous
  Country: HR (occurrence: HR)
  Receive Date: 20240610
  Receipt Date: 20240613
  Transmission Date: 20240716
  Serious: Yes (Other)
  Sender: FDA-Public Use
  Company Number: HR-002147023-NVSC2024HR118223

PATIENT
  Sex: Female

DRUGS (3)
  1. KISQALI [Suspect]
     Active Substance: RIBOCICLIB
     Indication: Hormone receptor positive HER2 negative breast cancer
     Dosage: 600 MG, QD
     Route: 065
     Dates: start: 202302
  2. KISQALI [Suspect]
     Active Substance: RIBOCICLIB
     Dosage: 400 MG
     Route: 065
     Dates: start: 202306
  3. FULVESTRANT [Concomitant]
     Active Substance: FULVESTRANT
     Indication: Product used for unknown indication
     Dosage: UNK
     Route: 065
     Dates: start: 202302

REACTIONS (4)
  - Pleural effusion [Recovering/Resolving]
  - Hepatic lesion [Recovering/Resolving]
  - Neutropenia [Recovering/Resolving]
  - Lymphadenopathy [Recovering/Resolving]

NARRATIVE: CASE EVENT DATE: 20230201
